FAERS Safety Report 8244490-5 (Version None)
Quarter: 2012Q1

REPORT INFORMATION
  Report Type: 
  Country: None (occurrence: None)
  Receive Date: 20120329
  Receipt Date: 20120323
  Transmission Date: 20120608
  Serious: Yes (Other)
  Sender: FDA-Public Use
  Company Number: PHHY2012FR010873

PATIENT
  Sex: Female

DRUGS (4)
  1. COZAAR [Concomitant]
     Dosage: 100 MG, BID
  2. EXELON [Suspect]
     Indication: DEMENTIA ALZHEIMER'S TYPE
     Dosage: 6 MG, BID
     Route: 048
     Dates: end: 20120101
  3. PAROXETINE HYDROCHLORIDE [Concomitant]
     Dosage: 20 MG/DAY
  4. STRESAM [Concomitant]
     Dosage: 2 DF, DAILY

REACTIONS (4)
  - TOXIC SKIN ERUPTION [None]
  - RASH PRURITIC [None]
  - ERYTHEMA MULTIFORME [None]
  - RASH MACULO-PAPULAR [None]
